FAERS Safety Report 6117549-6 (Version None)
Quarter: 2009Q1

REPORT INFORMATION
  Report Type: 
  Country: None (occurrence: None)
  Receive Date: 20090314
  Receipt Date: 20090225
  Transmission Date: 20090719
  Serious: No
  Sender: FDA-Public Use
  Company Number: US-ABBOTT-09P-163-0499068-00

PATIENT
  Sex: Female
  Weight: 86.26 kg

DRUGS (2)
  1. HUMIRA [Suspect]
     Indication: CROHN'S DISEASE
     Route: 058
     Dates: start: 20081114, end: 20090105
  2. HUMIRA [Suspect]
     Route: 058
     Dates: start: 20090211

REACTIONS (6)
  - DYSPHAGIA [None]
  - INFLUENZA LIKE ILLNESS [None]
  - NASAL CONGESTION [None]
  - OROPHARYNGEAL PAIN [None]
  - PYREXIA [None]
  - SINUS CONGESTION [None]
